FAERS Safety Report 4645962-2 (Version None)
Quarter: 2005Q2

REPORT INFORMATION
  Report Type: 
  Country: None (occurrence: None)
  Receive Date: 20050425
  Receipt Date: 20050419
  Transmission Date: 20051028
  Serious: Yes (Hospitalization, Other)
  Sender: FDA-Public Use
  Company Number: 200510779BWH

PATIENT
  Age: 45 Year
  Sex: Male

DRUGS (1)
  1. CIPRO IV [Suspect]
     Dosage: 400 MG, BID, INTRAVENOUS
     Route: 042
     Dates: start: 20050201

REACTIONS (10)
  - ANURIA [None]
  - ARTHROPATHY [None]
  - BACK PAIN [None]
  - BLOOD CREATININE INCREASED [None]
  - DIFFICULTY IN WALKING [None]
  - ERYTHEMA [None]
  - EXTREMITY CONTRACTURE [None]
  - HAEMODIALYSIS [None]
  - RASH [None]
  - TENDON RUPTURE [None]
